FAERS Safety Report 8452774-0 (Version None)
Quarter: 2012Q2

REPORT INFORMATION
  Report Type: 
  Country: None (occurrence: None)
  Receive Date: 20120620
  Receipt Date: 20120522
  Transmission Date: 20120825
  Serious: No
  Sender: FDA-Public Use
  Company Number: US-VERTEX PHARMACEUTICALS INC.-AE-2012-005966

PATIENT
  Sex: Male
  Weight: 88.53 kg

DRUGS (7)
  1. INCIVEK [Suspect]
     Indication: HEPATITIS C
     Route: 048
     Dates: start: 20120420
  2. GLUCOSAMINE [Concomitant]
     Route: 048
  3. ASPIRIN [Concomitant]
     Indication: CEREBROVASCULAR ACCIDENT
     Route: 048
  4. RIBAVIRIN [Concomitant]
     Indication: HEPATITIS C
     Route: 048
     Dates: start: 20120420
  5. ADVIL PM [Concomitant]
     Route: 048
  6. PEGASYS [Concomitant]
     Indication: HEPATITIS C
     Route: 058
     Dates: start: 20120420
  7. LOVAZA [Concomitant]
     Route: 048

REACTIONS (11)
  - DIARRHOEA [None]
  - DEPRESSION [None]
  - OROPHARYNGEAL PAIN [None]
  - SCROTAL SWELLING [None]
  - INFLUENZA LIKE ILLNESS [None]
  - ANORECTAL DISCOMFORT [None]
  - DYSPEPSIA [None]
  - FEELING ABNORMAL [None]
  - FATIGUE [None]
  - BLISTER [None]
  - PROCTALGIA [None]
